FAERS Safety Report 6968207-7 (Version None)
Quarter: 2010Q3

REPORT INFORMATION
  Report Type: 
  Country: None (occurrence: None)
  Receive Date: 20100907
  Receipt Date: 20100830
  Transmission Date: 20110219
  Serious: Yes (Death, Hospitalization)
  Sender: FDA-Public Use
  Company Number: FR-ROCHE-685476

PATIENT
  Sex: Female
  Weight: 54 kg

DRUGS (20)
  1. METHOXY POLYETHYLENE GLYCOL-EPOETIN BETA [Suspect]
     Dosage: FORM: PRE-FILLED SYRINGE (PFS). DATE OF LAST DOSE PRIOR TO SAE 12 MARCH 2010.
     Route: 042
     Dates: start: 20091218
  2. METHOXY POLYETHYLENE GLYCOL-EPOETIN BETA [Suspect]
     Dosage: FORM: PRE-FILLED SYRINGE (PFS)
     Route: 042
     Dates: start: 20100414
  3. ARICEPT [Concomitant]
     Dates: start: 20091205
  4. ATHYMIL [Concomitant]
     Dates: start: 20071203
  5. FOSRENOL [Concomitant]
     Dates: start: 20091026
  6. KAYEXALATE [Concomitant]
     Dosage: TDD: 1 ^MEASURING^ SPOON
     Dates: start: 20070220
  7. LEVOTHYROXINE SODIUM [Concomitant]
     Dates: start: 20091109
  8. NOOTROPYL [Concomitant]
     Dates: start: 20070905
  9. TANGANIL [Concomitant]
     Dates: start: 20081201
  10. VASTAREL [Concomitant]
     Dates: start: 20081224
  11. ASPEGIC 1000 [Concomitant]
     Dates: start: 20081201
  12. ASPEGIC 1000 [Concomitant]
     Dates: start: 20081224
  13. LASIX [Concomitant]
     Dates: start: 20070314
  14. ENALAPRIL MALEATE [Concomitant]
     Dates: start: 20080805
  15. PREVISCAN [Concomitant]
     Dosage: TDD: 3/4 CAPSULE
     Dates: start: 20091007
  16. CRESTOR [Concomitant]
     Dates: start: 20091011
  17. EUPANTOL [Concomitant]
     Dates: start: 20070220
  18. IMOVANE [Concomitant]
     Dates: start: 20080426
  19. IMODIUM [Concomitant]
     Dosage: TDD: 2/DAY
     Dates: start: 20070905
  20. TENORMIN [Concomitant]
     Dates: start: 20100111

REACTIONS (6)
  - ARTERIAL DISORDER [None]
  - ATRIAL FIBRILLATION [None]
  - GASTROENTERITIS [None]
  - LUNG DISORDER [None]
  - MULTI-ORGAN FAILURE [None]
  - PYREXIA [None]
